FAERS Safety Report 10638597 (Version 1)
Quarter: 2014Q4

REPORT INFORMATION
  Report Type: Spontaneous
  Country: US (occurrence: None)
  Receive Date: 20141121
  Receipt Date: 20141121
  Transmission Date: 20150529
  Serious: No
  Sender: FDA-Public Use
  Company Number: 163-10004-14072310

PATIENT
  Age: 59 Year
  Sex: Female

DRUGS (4)
  1. OTEZLA [Suspect]
     Active Substance: APREMILAST
     Indication: PSORIATIC ARTHROPATHY
     Route: 048
  2. MELOXICAM. [Concomitant]
     Active Substance: MELOXICAM
  3. LEVOTHYROXINE [Concomitant]
     Active Substance: LEVOTHYROXINE
  4. PROBIOTIC (BIFIDOBACTERIUM LACTIS) [Concomitant]

REACTIONS (3)
  - Drug dose omission [None]
  - Abdominal pain upper [None]
  - Dyspepsia [None]

NARRATIVE: CASE EVENT DATE: 20140708
